FAERS Safety Report 10009587 (Version 1)
Quarter: 2014Q1

REPORT INFORMATION
  Report Type: Spontaneous
  Country: US (occurrence: US)
  Receive Date: 20140312
  Receipt Date: 20140312
  Transmission Date: 20141002
  Serious: No
  Sender: FDA-Public Use
  Company Number: US-INCYTE CORPORATION-2012IN002082

PATIENT
  Sex: 0

DRUGS (13)
  1. JAKAFI [Suspect]
     Indication: MYELOFIBROSIS
     Dosage: 10 MG, BID
     Route: 048
     Dates: start: 201201
  2. ATENOLOL [Concomitant]
  3. HYDROCHLOROTHIAZIDE [Concomitant]
  4. ENTOCORT [Concomitant]
  5. DEXLANSOPRAZOLE [Concomitant]
  6. VITAMIN D [Concomitant]
  7. MEVACOR [Concomitant]
  8. MOBIC [Concomitant]
  9. FISH OIL [Concomitant]
  10. ELAVIL [Concomitant]
  11. BENTYL [Concomitant]
  12. TRAMADOL [Concomitant]
  13. VICODIN [Concomitant]

REACTIONS (3)
  - Fall [Unknown]
  - Joint injury [Unknown]
  - Eye infection staphylococcal [Unknown]
